FAERS Safety Report 16420294 (Version 1)
Quarter: 2019Q2

REPORT INFORMATION
  Report Type: Spontaneous
  Country: US (occurrence: US)
  Receive Date: 20190612
  Receipt Date: 20190612
  Transmission Date: 20190711
  Serious: No
  Sender: FDA-Public Use
  Company Number: US-PFIZER INC-2019246890

PATIENT
  Age: 57 Year
  Sex: Male
  Weight: 166.3 kg

DRUGS (1)
  1. NEURONTIN [Suspect]
     Active Substance: GABAPENTIN
     Dosage: UNK

REACTIONS (3)
  - Agitation [Unknown]
  - Drug hypersensitivity [Unknown]
  - Aggression [Unknown]
